FAERS Safety Report 6590035-5 (Version None)
Quarter: 2010Q1

REPORT INFORMATION
  Report Type: 
  Country: None (occurrence: None)
  Receive Date: 20100219
  Receipt Date: 20100210
  Transmission Date: 20100710
  Serious: No
  Sender: FDA-Public Use
  Company Number: PHEH2009US18905

PATIENT
  Sex: Female
  Weight: 53.515 kg

DRUGS (10)
  1. EXJADE [Suspect]
     Indication: IRON OVERLOAD
     Dosage: 1000 MG, QD
     Route: 048
     Dates: start: 20090416, end: 20090514
  2. TEKTURNA [Concomitant]
     Dosage: 150 MG DAILY
     Route: 048
  3. ASPIRIN [Concomitant]
     Dosage: 81 MG DAILY
     Route: 048
  4. CARVEDILOL [Concomitant]
     Dosage: 25 MG, BID
     Route: 048
  5. GLIPIZIDE [Concomitant]
     Dosage: 1.25 MG, QD
     Route: 048
  6. LISINOPRIL [Concomitant]
     Dosage: 20 MG, QD
     Route: 048
  7. METOCLOPRAMIDE HYDROCHLORIDE [Concomitant]
     Dosage: 5 MG AC/HS
     Route: 048
  8. MULTIVITAMINS PLUS IRON [Concomitant]
     Dosage: ONE A DAY
     Route: 048
  9. PROTONIX [Concomitant]
     Dosage: 40 MG, QD
     Route: 048
  10. COZAAR [Concomitant]
     Dosage: 25 MG, QD
     Route: 048

REACTIONS (21)
  - ARTHRALGIA [None]
  - BALANCE DISORDER [None]
  - BLOOD BICARBONATE DECREASED [None]
  - BLOOD CREATININE INCREASED [None]
  - BLOOD GLUCOSE INCREASED [None]
  - BLOOD POTASSIUM INCREASED [None]
  - BLOOD UREA INCREASED [None]
  - DIARRHOEA [None]
  - DIZZINESS [None]
  - DYSPNOEA [None]
  - EPISTAXIS [None]
  - HAEMOGLOBIN DECREASED [None]
  - HYPERHIDROSIS [None]
  - NAUSEA [None]
  - NEUTROPHIL COUNT DECREASED [None]
  - OXYGEN SATURATION DECREASED [None]
  - PALLOR [None]
  - PLATELET COUNT DECREASED [None]
  - SERUM FERRITIN INCREASED [None]
  - VOMITING [None]
  - WHITE BLOOD CELL COUNT DECREASED [None]
